FAERS Safety Report 6433098-X (Version None)
Quarter: 2009Q4

REPORT INFORMATION
  Report Type: 
  Country: None (occurrence: None)
  Receive Date: 20091105
  Receipt Date: 20091021
  Transmission Date: 20100525
  Serious: Yes (Hospitalization, Other)
  Sender: FDA-Public Use
  Company Number: AUR-APL-2009-01024

PATIENT
  Age: 67 Year
  Sex: Female

DRUGS (2)
  1. CLINDAMYCIN [Suspect]
     Indication: TONSILLITIS
     Dosage: 600MG, TID, IM
     Route: 030
  2. ACENOCOUMAROL [Suspect]
     Indication: ATRIAL FIBRILLATION

REACTIONS (8)
  - ACTIVATED PARTIAL THROMBOPLASTIN TIME PROLONGED [None]
  - ANAEMIA [None]
  - BLOOD GLUCOSE INCREASED [None]
  - ECCHYMOSIS [None]
  - INJECTION SITE HAEMATOMA [None]
  - INTERNATIONAL NORMALISED RATIO INCREASED [None]
  - LEUKOCYTOSIS [None]
  - SPONTANEOUS HAEMATOMA [None]
